FAERS Safety Report 19253265 (Version 5)
Quarter: 2022Q2

REPORT INFORMATION
  Report Type: Spontaneous
  Country: US (occurrence: US)
  Receive Date: 20210513
  Receipt Date: 20220429
  Transmission Date: 20220721
  Serious: No
  Sender: FDA-Public Use
  Company Number: US-KARYOPHARM-2021KPT000502

PATIENT

DRUGS (3)
  1. XPOVIO [Suspect]
     Active Substance: SELINEXOR
     Indication: Plasma cell myeloma
     Dosage: 40 MG, 2X/WEEK
     Route: 048
     Dates: end: 20210402
  2. XPOVIO [Suspect]
     Active Substance: SELINEXOR
     Dosage: 80 MG, 2X/WEEK
     Route: 048
     Dates: end: 202110
  3. XPOVIO [Suspect]
     Active Substance: SELINEXOR
     Dosage: 80 MG, 2X/WEEK
     Route: 048
     Dates: start: 2021, end: 20220304

REACTIONS (11)
  - Insomnia [Unknown]
  - Pruritus [Unknown]
  - Red blood cell count decreased [Unknown]
  - Weight increased [Unknown]
  - Depressed mood [Unknown]
  - Weight decreased [Recovered/Resolved]
  - Nausea [Unknown]
  - Asthenia [Unknown]
  - Constipation [Unknown]
  - Haemoglobin decreased [Unknown]
  - Cataract [Unknown]

NARRATIVE: CASE EVENT DATE: 20210101
